FAERS Safety Report 20531320 (Version 3)
Quarter: 2022Q1

REPORT INFORMATION
  Report Type: Report from Study
  Country: MY (occurrence: None)
  Receive Date: 20220301
  Receipt Date: 20220314
  Transmission Date: 20220423
  Serious: Yes (Hospitalization)
  Sender: FDA-Public Use
  Company Number: MY-Eisai Medical Research-EC-2022-109551

PATIENT
  Age: 63 Year
  Sex: Male
  Weight: 64.8 kg

DRUGS (11)
  1. LENVATINIB [Suspect]
     Active Substance: LENVATINIB
     Indication: Clear cell renal cell carcinoma
     Route: 048
     Dates: start: 20220112
  2. PEMBROLIZUMAB [Suspect]
     Active Substance: PEMBROLIZUMAB
     Indication: Clear cell renal cell carcinoma
     Route: 041
     Dates: start: 20220112, end: 20220112
  3. DOXAZOSIN [Concomitant]
     Active Substance: DOXAZOSIN MESYLATE
     Dates: start: 202110
  4. LOPERAMIDE [Concomitant]
     Active Substance: LOPERAMIDE
     Dates: start: 20220112
  5. AMLODIPINE [Concomitant]
     Active Substance: AMLODIPINE BESYLATE
     Dates: start: 20220127
  6. LACTULOSE [Concomitant]
     Active Substance: LACTULOSE
     Dates: start: 20220203, end: 20220216
  7. CHLORPROMAZINE [Concomitant]
     Active Substance: CHLORPROMAZINE
     Dates: start: 20220203, end: 20220207
  8. CHLORPHENIRAMINE [Concomitant]
     Active Substance: CHLORPHENIRAMINE
     Dates: start: 20220216
  9. PERINDOPRIL [Concomitant]
     Active Substance: PERINDOPRIL
     Dates: start: 20220216
  10. LORATADINE [Concomitant]
     Active Substance: LORATADINE
     Dates: start: 20220216
  11. IBERET FOLIC [Concomitant]
     Dates: start: 20211216

REACTIONS (8)
  - Immune-mediated hepatitis [Not Recovered/Not Resolved]
  - Hypophosphataemia [Unknown]
  - Hypomagnesaemia [Recovered/Resolved]
  - Hypokalaemia [Not Recovered/Not Resolved]
  - Hyponatraemia [Recovered/Resolved]
  - Hypocalcaemia [Not Recovered/Not Resolved]
  - Hypothyroidism [Unknown]
  - Anaemia [Unknown]

NARRATIVE: CASE EVENT DATE: 20220201
